FAERS Safety Report 18898290 (Version 1)
Quarter: 2021Q1

REPORT INFORMATION
  Report Type: Spontaneous
  Country: US (occurrence: US)
  Receive Date: 20210213
  Receipt Date: 20210213
  Transmission Date: 20210420
  Serious: Yes (Disabling)
  Sender: FDA-Public Use
  Company Number: None

PATIENT
  Age: 52 Year
  Sex: Male
  Weight: 76.5 kg

DRUGS (4)
  1. CANE [Concomitant]
  2. SCENT THEORY ? KEEP CLEAN MOISTURIZING HAND SANITIZER [Suspect]
     Active Substance: ALCOHOL
     Indication: ANTIBIOTIC PROPHYLAXIS
     Route: 061
     Dates: start: 20200508, end: 20210213
  3. WALKER [Concomitant]
  4. WHEELCHAIR [Concomitant]
     Active Substance: DEVICE

REACTIONS (6)
  - Muscle spasms [None]
  - Pain [None]
  - Tenderness [None]
  - Muscular weakness [None]
  - Back pain [None]
  - Headache [None]

NARRATIVE: CASE EVENT DATE: 20200514
